FAERS Safety Report 6152325-X (Version None)
Quarter: 2009Q2

REPORT INFORMATION
  Report Type: 
  Country: None (occurrence: None)
  Receive Date: 20090413
  Receipt Date: 20071024
  Transmission Date: 20091009
  Serious: Yes (Death, Other)
  Sender: FDA-Public Use
  Company Number: US-ASTRAZENECA-2007UW19004

PATIENT
  Age: 45 Year
  Sex: Male
  Weight: 142.9 kg

DRUGS (21)
  1. SEROQUEL [Suspect]
     Route: 048
     Dates: start: 19991115, end: 20060415
  2. SEROQUEL [Suspect]
     Dosage: 100-500 MG
     Route: 048
  3. ACTOS [Concomitant]
     Dates: start: 20061207
  4. ATENOLOL [Concomitant]
     Dates: start: 20010427
  5. VIAGRA [Concomitant]
     Dates: start: 20051202
  6. BEXTRA [Concomitant]
     Dates: start: 20040924
  7. TRICOR [Concomitant]
     Dates: start: 20040622
  8. METFORMIN [Concomitant]
     Dates: start: 20030523
  9. ALLOPURINOL [Concomitant]
  10. AMARYL [Concomitant]
     Dates: start: 20030910
  11. TRIAMTERENE AND HYDROCHLOROTHIAZIDE [Concomitant]
     Dates: start: 20030910
  12. INDOCIN [Concomitant]
     Dates: start: 20030120
  13. IBUPROFEN [Concomitant]
     Dates: start: 20030717
  14. AMBIEN [Concomitant]
     Dates: start: 20030717
  15. ALDOMET [Concomitant]
     Dates: start: 20011112
  16. NITROSTAT [Concomitant]
     Dates: start: 20040421
  17. PROLAXIN DECONATE [Concomitant]
     Dates: start: 20030523
  18. WELLBUTRIN [Concomitant]
  19. HALDOL [Concomitant]
  20. RISPERDAL [Concomitant]
  21. DALMANE [Concomitant]

REACTIONS (16)
  - ACUTE MYOCARDIAL INFARCTION [None]
  - ACUTE PSYCHOSIS [None]
  - BACK PAIN [None]
  - CARDIO-RESPIRATORY ARREST [None]
  - CLAUSTROPHOBIA [None]
  - DELUSION [None]
  - DELUSION OF GRANDEUR [None]
  - DELUSIONAL DISORDER, EROTOMANIC TYPE [None]
  - DIABETES MELLITUS [None]
  - EYE SWELLING [None]
  - INITIAL INSOMNIA [None]
  - LOCALISED INFECTION [None]
  - MYALGIA [None]
  - PARONYCHIA [None]
  - RASH [None]
  - TARDIVE DYSKINESIA [None]
